FAERS Safety Report 13364454 (Version 1)
Quarter: 2017Q1

REPORT INFORMATION
  Report Type: Spontaneous
  Country: US (occurrence: US)
  Receive Date: 20170323
  Receipt Date: 20170323
  Transmission Date: 20170429
  Serious: Yes (Death)
  Sender: FDA-Public Use
  Company Number: US-ARBOR PHARMACEUTICALS, LLC-US-2017ARB000338

PATIENT
  Sex: Female

DRUGS (1)
  1. NYMALIZE [Suspect]
     Active Substance: NIMODIPINE
     Indication: SUBARACHNOID HAEMORRHAGE
     Dosage: EITHER 60 MG EVERY 4 HOURS OR 30 MG EVERY 2 HOURS FOR 21 DAYS
     Route: 048

REACTIONS (2)
  - Gastrointestinal haemorrhage [Fatal]
  - Diarrhoea [Recovered/Resolved]
